FAERS Safety Report 23981479 (Version 1)
Quarter: 2024Q2

REPORT INFORMATION
  Report Type: Spontaneous
  Country: US (occurrence: US)
  Receive Date: 20240617
  Receipt Date: 20240617
  Transmission Date: 20240716
  Serious: Yes (Life-Threatening, Hospitalization, Other)
  Sender: FDA-Public Use
  Company Number: US-HIKMA PHARMACEUTICALS USA INC.-US-H14001-24-05038

PATIENT
  Age: 56 Year
  Sex: Male

DRUGS (10)
  1. AMPICILLIN [Suspect]
     Active Substance: AMPICILLIN
     Indication: Antibiotic prophylaxis
     Dosage: 2 GRAM
     Route: 065
  2. GENTAMICIN [Suspect]
     Active Substance: GENTAMICIN
     Indication: Antibiotic prophylaxis
     Dosage: 150 MILLIGRAM, QN
     Route: 042
  3. KETOROLAC [Suspect]
     Active Substance: KETOROLAC TROMETHAMINE
     Indication: Postoperative analgesia
     Dosage: UNK, QN
     Route: 042
  4. PROPOFOL [Suspect]
     Active Substance: PROPOFOL
     Indication: Anaesthesia
     Dosage: 200 MG/20ML, ONCE
     Route: 042
  5. DEXAMETHASONE [Concomitant]
     Active Substance: DEXAMETHASONE
     Indication: Perioperative analgesia
     Dosage: 4 MILLIGRAM PER MILLILITRE, QN
     Route: 065
  6. FENTANYL [Concomitant]
     Active Substance: FENTANYL\FENTANYL CITRATE
     Indication: Perioperative analgesia
     Dosage: 100 MCG/2ML, ONCE
     Route: 042
  7. ISOVUE 300 [Concomitant]
     Active Substance: IOPAMIDOL
     Indication: Perioperative analgesia
     Dosage: 100 MILLILITER, QN, IV CONTRAST
     Route: 042
  8. KENALOG [Concomitant]
     Active Substance: TRIAMCINOLONE ACETONIDE
     Indication: Perioperative analgesia
     Dosage: SUBSEQUENT 400 MG/10ML
     Route: 026
  9. LIDOCAINE [Concomitant]
     Active Substance: LIDOCAINE
     Indication: Perioperative analgesia
     Dosage: UNK, QN
     Route: 061
  10. ONDANSETRON [Concomitant]
     Active Substance: ONDANSETRON
     Indication: Perioperative analgesia
     Dosage: 4 MG/2ML, ONCE
     Route: 042

REACTIONS (3)
  - Acute kidney injury [Recovered/Resolved]
  - Renal failure [Recovered/Resolved]
  - Haematuria [Unknown]
